FAERS Safety Report 7550259-7 (Version None)
Quarter: 2011Q2

REPORT INFORMATION
  Report Type: 
  Country: None (occurrence: None)
  Receive Date: 20110615
  Receipt Date: 20110104
  Transmission Date: 20111010
  Serious: Yes (Hospitalization, Disabling, Other)
  Sender: FDA-Public Use
  Company Number: US-BAYER-201021663NA

PATIENT
  Age: 38 Year
  Sex: Female
  Weight: 106.58 kg

DRUGS (12)
  1. LIPITOR [Concomitant]
     Indication: BLOOD CHOLESTEROL INCREASED
     Dosage: 10 MG, UNK
     Route: 048
     Dates: start: 20080320
  2. TOPAMAX [Concomitant]
     Indication: MIGRAINE
     Dosage: 75 MG, HS
     Route: 048
  3. TISSUE PLASMINOGEN ACTIVATOR [Concomitant]
     Indication: CEREBROVASCULAR ACCIDENT
     Dosage: UNK
  4. YAZ [Suspect]
     Indication: CONVULSION
  5. YAZ [Suspect]
     Indication: MIGRAINE
  6. TOPAMAX [Concomitant]
     Indication: CONVULSION
     Dosage: 50 MG, OM
     Route: 048
     Dates: start: 20050101
  7. MIRAPEX [Concomitant]
     Indication: RESTLESS LEGS SYNDROME
     Dosage: UNK UNK, UNK
     Route: 048
     Dates: start: 20060101
  8. AMBIEN [Concomitant]
     Indication: SLEEP DISORDER
     Dosage: UNK
     Dates: start: 20060101
  9. YAZ [Suspect]
     Indication: ORAL CONTRACEPTION
     Dosage: UNK UNK, QD
     Route: 048
     Dates: start: 20070801, end: 20080303
  10. ZOLPIDEM [Concomitant]
     Indication: SLEEP DISORDER THERAPY
     Dosage: 10 MG, UNK
     Route: 048
  11. SYNTHROID [Concomitant]
     Indication: HYPOTHYROIDISM
     Dosage: 0.1 MG, UNK
     Route: 048
     Dates: start: 20000101
  12. ASPIRIN [Concomitant]
     Indication: PRODUCT USED FOR UNKNOWN INDICATION

REACTIONS (5)
  - CEREBROVASCULAR ACCIDENT [None]
  - PULMONARY EMBOLISM [None]
  - SPEECH DISORDER [None]
  - BASAL GANGLIA INFARCTION [None]
  - HEMIPARESIS [None]
